FAERS Safety Report 6759535-9 (Version None)
Quarter: 2010Q2

REPORT INFORMATION
  Report Type: 
  Country: None (occurrence: None)
  Receive Date: 20100604
  Receipt Date: 20100521
  Transmission Date: 20101027
  Serious: Yes (Hospitalization)
  Sender: FDA-Public Use
  Company Number: 7005525

PATIENT
  Age: 54 Year
  Sex: Female
  Weight: 72 kg

DRUGS (8)
  1. REBIF [Suspect]
     Indication: OFF LABEL USE
     Dates: start: 20060511, end: 20080501
  2. RITUXIMAB (RITUXIMAB) [Suspect]
     Indication: PRIMARY PROGRESSIVE MULTIPLE SCLEROSIS
     Dates: end: 20080501
  3. COPAXONE [Suspect]
     Indication: PRIMARY PROGRESSIVE MULTIPLE SCLEROSIS
  4. NEURONTIN [Concomitant]
  5. OXYCODONE HCL [Concomitant]
  6. CYMBALTA [Concomitant]
  7. LYRICA [Concomitant]
  8. BACLOFEN [Concomitant]

REACTIONS (2)
  - INFLAMMATORY CARCINOMA OF THE BREAST [None]
  - OFF LABEL USE [None]
